FAERS Safety Report 8103626-7 (Version None)
Quarter: 2012Q1

REPORT INFORMATION
  Report Type: 
  Country: None (occurrence: None)
  Receive Date: 20120201
  Receipt Date: 20120117
  Transmission Date: 20120608
  Serious: Yes (Hospitalization, Disabling, Other)
  Sender: FDA-Public Use
  Company Number: US-ROCHE-789804

PATIENT
  Weight: 71.278 kg

DRUGS (9)
  1. ACTEMRA [Suspect]
  2. ACTEMRA [Suspect]
  3. ACTEMRA [Suspect]
  4. ACTEMRA [Suspect]
  5. ACTEMRA [Suspect]
     Indication: RHEUMATOID ARTHRITIS
     Dosage: FORM:INFUSION; TOTAL MONTHLY DOSE: 290 TO 578 MG
     Route: 042
  6. GOLD [Concomitant]
     Dosage: FREQUENCY 30D
     Route: 030
  7. METHOTREXATE [Concomitant]
     Dosage: FREQUENCY: 7D
     Route: 048
  8. PLAQUENIL [Concomitant]
     Route: 048
  9. ANTIHYPERTENSIVE DRUG [Concomitant]

REACTIONS (2)
  - TRANSIENT ISCHAEMIC ATTACK [None]
  - CONVULSION [None]
